FAERS Safety Report 5800546-5 (Version None)
Quarter: 2008Q3

REPORT INFORMATION
  Report Type: 
  Country: None (occurrence: None)
  Receive Date: 20080701
  Receipt Date: 20080625
  Transmission Date: 20090109
  Serious: Yes (Death, Life-Threatening, Hospitalization)
  Sender: FDA-Public Use
  Company Number: ES-JNJFOC-20070401772

PATIENT
  Age: 73 Year
  Sex: Male

DRUGS (6)
  1. DECITABINE (DECITABINE) LYOPHILIZED POWDER [Suspect]
     Indication: ACUTE MYELOID LEUKAEMIA
     Dosage: 36 MG, INTRAVENOUS
     Route: 042
     Dates: start: 20070309, end: 20070313
  2. MEROPENEM (MEROPENEM) UNSPECIFIED [Concomitant]
  3. ONDANSETRON (ONDANSETRON) UNSPECIFIED [Concomitant]
  4. FUROSEMIDA (FUROSEMIDE) UNSPECIFIED [Concomitant]
  5. TEICOLPLANINA (TEICOPLANIN) UNSPECIFIED [Concomitant]
  6. AMIKACINA (AMIKACIN) UNSPECIFIED [Concomitant]

REACTIONS (23)
  - ACUTE RESPIRATORY FAILURE [None]
  - CARDIAC FAILURE [None]
  - CARDIOMEGALY [None]
  - CHOLESTASIS [None]
  - CONFUSIONAL STATE [None]
  - CREPITATIONS [None]
  - DEPRESSED LEVEL OF CONSCIOUSNESS [None]
  - DISORIENTATION [None]
  - EPISTAXIS [None]
  - GENERAL PHYSICAL HEALTH DETERIORATION [None]
  - GENERALISED OEDEMA [None]
  - HYPOALBUMINAEMIA [None]
  - HYPOXIA [None]
  - LIVER DISORDER [None]
  - LOBAR PNEUMONIA [None]
  - MUCOSAL DISCOLOURATION [None]
  - OXYGEN SATURATION DECREASED [None]
  - PALLOR [None]
  - PETECHIAE [None]
  - RALES [None]
  - RESPIRATORY DISORDER [None]
  - SEPSIS [None]
  - UPPER RESPIRATORY TRACT INFECTION [None]
